FAERS Safety Report 23457799 (Version 1)
Quarter: 2024Q1

REPORT INFORMATION
  Report Type: Spontaneous
  Country: US (occurrence: None)
  Receive Date: 20240130
  Receipt Date: 20240130
  Transmission Date: 20240409
  Serious: Yes (Hospitalization)
  Sender: FDA-Public Use
  Company Number: 2024A021822

PATIENT
  Age: 58 Year
  Sex: Male

DRUGS (5)
  1. SEROQUEL [Suspect]
     Active Substance: QUETIAPINE FUMARATE
     Route: 048
  2. INGREZZA [Suspect]
     Active Substance: VALBENAZINE
     Indication: Dyskinesia
     Route: 048
     Dates: start: 20200224, end: 20200301
  3. INGREZZA [Suspect]
     Active Substance: VALBENAZINE
     Indication: Dyskinesia
     Route: 048
     Dates: start: 20200302, end: 20200423
  4. INGREZZA [Suspect]
     Active Substance: VALBENAZINE
     Indication: Dyskinesia
     Route: 048
     Dates: start: 20200623, end: 20200914
  5. INGREZZA [Suspect]
     Active Substance: VALBENAZINE
     Indication: Dyskinesia
     Route: 048
     Dates: start: 20200915

REACTIONS (17)
  - Balance disorder [Unknown]
  - Parkinsonism [Unknown]
  - Fall [Recovered/Resolved]
  - Hepatitis C [Unknown]
  - Gait disturbance [Unknown]
  - Anxiety [Unknown]
  - Contusion [Unknown]
  - Memory impairment [Unknown]
  - Restlessness [Unknown]
  - Confusional state [Unknown]
  - Somnolence [Unknown]
  - Fatigue [Unknown]
  - Sedation [Unknown]
  - Weight increased [Unknown]
  - Tardive dyskinesia [Unknown]
  - Therapeutic product effect incomplete [Unknown]
  - Drug ineffective [Unknown]

NARRATIVE: CASE EVENT DATE: 20230101
